FAERS Safety Report 16871850 (Version 1)
Quarter: 2019Q4

REPORT INFORMATION
  Report Type: Spontaneous
  Country: NL (occurrence: NL)
  Receive Date: 20191001
  Receipt Date: 20191001
  Transmission Date: 20200122
  Serious: Yes (Other)
  Sender: FDA-Public Use
  Company Number: NL-TEVA-2019-NL-1113968

PATIENT
  Sex: Male
  Weight: 103 kg

DRUGS (12)
  1. OMECAT 20 MG CAPSULE MSR [Concomitant]
     Dosage: 1 DD 1, 20 MG PER DAY
  2. AZITROMYCINE TABLET, 250 MG (MILLIGRAM) [Suspect]
     Active Substance: AZITHROMYCIN
     Indication: EMPHYSEMA
     Dosage: 3 TIMES PER WEEK 1 TABLET, 250 MG PER 2 DAYS
     Dates: start: 20080323, end: 20170901
  3. GABAPENTINE PCH 300 MG CAPS [Concomitant]
     Dosage: 3 DD 1 CAPSULE, 30 MG PER HRS
     Dates: end: 20160511
  4. MICONAZOL/HC PCH 20/10 MG CREME [Concomitant]
     Dosage: 2 DD CR?ME, 2 DOSAGE FORMS
     Dates: start: 20151207, end: 20160113
  5. BUMETANIDE PCH 1 MG TABLET [Concomitant]
     Dosage: 1 DD 1, 1 MG PER DAY
     Dates: start: 20161129, end: 20170127
  6. DICLOFENAC /MISOSDZ 50/0,2 MG [Concomitant]
     Dates: start: 20160418, end: 20160424
  7. PREDNISOLON PCH 5 MG TABLET [Concomitant]
     Dosage: VV ARTS
  8. ZOPICLON  PCH 7,5 MG TABLET [Concomitant]
     Dosage: 1 DD 1 FOR THE NIGHT, 7 MG PER DAY
  9. CALCI CHEW 500 MG KAUWTABLET [Concomitant]
     Dosage: 1 DD 1
  10. MOMETASON FUR CF 50 MCG/DI 140 [Concomitant]
     Dosage: 1 DD 2 SPRAY IN BOTH NOSTRILS
     Dates: end: 20170317
  11. DICLOFENAC NA CF 50 MG T MSR [Concomitant]
     Dosage: 3 DD 1, 50 MG PER 8 HRS
  12. FOSTER AER 100/6 MCG/DO 120 DO [Concomitant]
     Dosage: 3 DD 2 INHALATIES, 2 DOSAGE FORMS
     Dates: start: 20161123

REACTIONS (5)
  - Coordination abnormal [Recovered/Resolved]
  - Depersonalisation/derealisation disorder [Recovered/Resolved]
  - Dysarthria [Recovered/Resolved]
  - Confusional state [Recovered/Resolved]
  - Sensory disturbance [Recovered/Resolved]
